FAERS Safety Report 5095413-1 (Version None)
Quarter: 2006Q3

REPORT INFORMATION
  Report Type: 
  Country: None (occurrence: None)
  Receive Date: 20060901
  Receipt Date: 20060804
  Transmission Date: 20061208
  Serious: Yes (Hospitalization)
  Sender: FDA-Public Use
  Company Number: US-ROCHE-458657

PATIENT
  Age: 57 Year
  Sex: Female
  Weight: 81.6 kg

DRUGS (4)
  1. BONIVA [Suspect]
     Indication: DRUG USE FOR UNKNOWN INDICATION
     Route: 048
     Dates: start: 20051115, end: 20060615
  2. BONIVA [Suspect]
     Route: 048
     Dates: start: 20060815
  3. PREDNISONE TAB [Concomitant]
     Indication: POLYARTERITIS NODOSA
     Route: 048
     Dates: start: 20030615
  4. CYTOXAN [Concomitant]
     Indication: POLYARTERITIS NODOSA
     Route: 048
     Dates: start: 20030615, end: 20060715

REACTIONS (1)
  - BONE CYST [None]
